FAERS Safety Report 11396577 (Version 2)
Quarter: 2015Q3

REPORT INFORMATION
  Report Type: Spontaneous
  Country: US (occurrence: US)
  Receive Date: 20150819
  Receipt Date: 20150911
  Transmission Date: 20151125
  Serious: Yes (Other)
  Sender: FDA-Public Use
  Company Number: US-JNJFOC-20150800374

PATIENT
  Sex: Female

DRUGS (2)
  1. HYDROXYCUT [Concomitant]
     Active Substance: HERBALS
     Indication: PRODUCT USED FOR UNKNOWN INDICATION
     Route: 065
  2. XARELTO [Suspect]
     Active Substance: RIVAROXABAN
     Indication: PRODUCT USED FOR UNKNOWN INDICATION
     Route: 048
     Dates: start: 20150523

REACTIONS (3)
  - Pelvic venous thrombosis [Unknown]
  - Malaise [Not Recovered/Not Resolved]
  - Thrombosis [Unknown]
